FAERS Safety Report 13429534 (Version 2)
Quarter: 2017Q2

REPORT INFORMATION
  Report Type: Report from Study
  Country: None (occurrence: US)
  Receive Date: 20170411
  Receipt Date: 20170606
  Transmission Date: 20170830
  Serious: Yes (Hospitalization, Other)
  Sender: FDA-Public Use
  Company Number: US-ABBVIE-17K-163-1937741-00

PATIENT
  Age: 50 Year
  Sex: Female
  Weight: 56.3 kg

DRUGS (5)
  1. HUMIRA [Suspect]
     Active Substance: ADALIMUMAB
     Indication: GASTROINTESTINAL INFLAMMATION
     Route: 058
     Dates: start: 201508, end: 201703
  2. PROTONIX [Concomitant]
     Active Substance: PANTOPRAZOLE SODIUM
     Indication: GASTROOESOPHAGEAL REFLUX DISEASE
  3. METOPROLOL. [Concomitant]
     Active Substance: METOPROLOL
     Indication: HYPERTENSION
  4. HUMIRA [Suspect]
     Active Substance: ADALIMUMAB
     Indication: RHEUMATOID ARTHRITIS
  5. LEVOTHYROXINE. [Concomitant]
     Active Substance: LEVOTHYROXINE
     Indication: HYPOTHYROIDISM

REACTIONS (9)
  - Oral herpes [Recovered/Resolved]
  - Insomnia [Recovering/Resolving]
  - Staphylococcal infection [Recovering/Resolving]
  - Irritable bowel syndrome [Not Recovered/Not Resolved]
  - Feeding disorder [Recovered/Resolved]
  - Pancreatitis [Not Recovered/Not Resolved]
  - Nausea [Not Recovered/Not Resolved]
  - Joint range of motion decreased [Recovering/Resolving]
  - Oral herpes [Unknown]

NARRATIVE: CASE EVENT DATE: 201701
